FAERS Safety Report 6178792-3 (Version None)
Quarter: 2009Q2

REPORT INFORMATION
  Report Type: 
  Country: None (occurrence: None)
  Receive Date: 20090504
  Receipt Date: 20090423
  Transmission Date: 20091009
  Serious: Yes (Hospitalization)
  Sender: FDA-Public Use
  Company Number: US-BAXTER-2009BH005287

PATIENT
  Age: 42 Year
  Sex: Female
  Weight: 92 kg

DRUGS (1)
  1. DIANEAL [Suspect]
     Indication: RENAL FAILURE CHRONIC
     Route: 033
     Dates: start: 20070701, end: 20090403

REACTIONS (3)
  - DIVERTICULAR PERFORATION [None]
  - PERITONITIS BACTERIAL [None]
  - PROCEDURAL PAIN [None]
